FAERS Safety Report 11148819 (Version 3)
Quarter: 2019Q4

REPORT INFORMATION
  Report Type: Spontaneous
  Country: US (occurrence: US)
  Receive Date: 20150529
  Receipt Date: 20191226
  Transmission Date: 20200122
  Serious: Yes (Death, Hospitalization)
  Sender: FDA-Public Use
  Company Number: US-JNJFOC-20150516603

PATIENT
  Age: 63 Year
  Sex: Male

DRUGS (1)
  1. XARELTO [Suspect]
     Active Substance: RIVAROXABAN
     Indication: DEEP VEIN THROMBOSIS
     Route: 048
     Dates: start: 20121214, end: 20130504

REACTIONS (3)
  - Hydrocephalus [Unknown]
  - Encephalopathy [Fatal]
  - Cerebral haematoma [Unknown]

NARRATIVE: CASE EVENT DATE: 20130504
